FAERS Safety Report 8000349 (Version 4)
Quarter: 2012Q4

REPORT INFORMATION
  Report Type: 
  Country: US (occurrence: US)
  Receive Date: 20110621
  Receipt Date: 20121228
  Transmission Date: 20130627
  Serious: No
  Sender: FDA-Public Use
  Company Number: US-ASTRAZENECA-2010SE52021

PATIENT
  Age: 68 Year
  Sex: Female

DRUGS (4)
  1. ATACAND [Suspect]
     Route: 048
  2. PULMICORT FLEXHALER [Suspect]
     Dosage: TWO PUFF PER DAY
     Route: 055
  3. PULMICORT FLEXHALER [Suspect]
     Dosage: ONE PUFF PER DAY
     Route: 055
  4. NEXIUM [Suspect]
     Route: 048

REACTIONS (7)
  - Pain [Unknown]
  - Disease recurrence [Unknown]
  - Glaucoma [Unknown]
  - Abdominal discomfort [Unknown]
  - Intentional drug misuse [Unknown]
  - Drug dose omission [Unknown]
  - Off label use [Unknown]
